FAERS Safety Report 17793813 (Version 1)
Quarter: 2020Q2

REPORT INFORMATION
  Report Type: Spontaneous
  Country: US (occurrence: US)
  Receive Date: 20200515
  Receipt Date: 20200515
  Transmission Date: 20200714
  Serious: No
  Sender: FDA-Public Use
  Company Number: US-BAUSCH-BL-2020-014208

PATIENT
  Age: 68 Year
  Sex: Male

DRUGS (3)
  1. LUMIFY [Suspect]
     Active Substance: BRIMONIDINE TARTRATE
     Dosage: EACH EYE AS NEEDED
     Route: 047
     Dates: start: 202004
  2. LUMIFY [Suspect]
     Active Substance: BRIMONIDINE TARTRATE
     Indication: OCULAR HYPERAEMIA
     Dosage: EACH EYE AS NEEDED
     Route: 047
     Dates: start: 202004
  3. LUMIFY [Suspect]
     Active Substance: BRIMONIDINE TARTRATE
     Dosage: EACH EYE AS NEEDED
     Route: 047
     Dates: start: 202004

REACTIONS (2)
  - Ocular hyperaemia [Unknown]
  - Condition aggravated [Unknown]

NARRATIVE: CASE EVENT DATE: 202004
